FAERS Safety Report 6579709-X (Version None)
Quarter: 2010Q1

REPORT INFORMATION
  Report Type: 
  Country: None (occurrence: None)
  Receive Date: 20100212
  Receipt Date: 20100201
  Transmission Date: 20100710
  Serious: Yes (Hospitalization)
  Sender: FDA-Public Use
  Company Number: IE-MEDIMMUNE-MEDI-0010475

PATIENT
  Sex: Female

DRUGS (1)
  1. SYNAGIS [Suspect]
     Route: 030
     Dates: start: 20091118, end: 20091118

REACTIONS (2)
  - LOWER RESPIRATORY TRACT INFECTION [None]
  - POOR WEIGHT GAIN NEONATAL [None]
